FAERS Safety Report 19859369 (Version 5)
Quarter: 2021Q4

REPORT INFORMATION
  Report Type: Spontaneous
  Country: US (occurrence: US)
  Receive Date: 20210921
  Receipt Date: 20211126
  Transmission Date: 20220303
  Serious: Yes (Hospitalization, Other)
  Sender: FDA-Public Use
  Company Number: US-UNITED THERAPEUTICS-UNT-2021-018422

PATIENT
  Age: 83 Year
  Sex: Female
  Weight: 58.957 kg

DRUGS (6)
  1. TYVASO [Suspect]
     Active Substance: TREPROSTINIL
     Indication: Pulmonary arterial hypertension
     Dosage: UNK
     Dates: start: 20200109
  2. TYVASO [Suspect]
     Active Substance: TREPROSTINIL
     Dosage: 18-54 ?G, QID
  3. TYVASO [Suspect]
     Active Substance: TREPROSTINIL
     Dosage: 36 ?G, QID
     Dates: start: 2021
  4. TYVASO [Suspect]
     Active Substance: TREPROSTINIL
     Dosage: 18-54 ?G, QID
  5. ELIQUIS [Concomitant]
     Active Substance: APIXABAN
     Indication: Product used for unknown indication
     Dosage: UNK
     Route: 065
  6. DILTIAZEM [Concomitant]
     Active Substance: DILTIAZEM
     Indication: Product used for unknown indication
     Dosage: UNK
     Route: 065

REACTIONS (3)
  - Bradycardia [Unknown]
  - Organ failure [Unknown]
  - Decreased appetite [Unknown]

NARRATIVE: CASE EVENT DATE: 20210905
